FAERS Safety Report 16922985 (Version 1)
Quarter: 2019Q4

REPORT INFORMATION
  Report Type: Spontaneous
  Country: US (occurrence: US)
  Receive Date: 20190822
  Receipt Date: 20190822
  Transmission Date: 20200122
  Serious: Yes (Hospitalization)
  Sender: FDA-Public Use
  Company Number: None

PATIENT
  Age: 45 Year
  Sex: Female

DRUGS (1)
  1. JADENU [Suspect]
     Active Substance: DEFERASIROX
     Indication: CARDIAC IRON OVERLOAD
     Route: 048
     Dates: start: 20180718

REACTIONS (2)
  - Sickle cell disease [None]
  - Cardiac disorder [None]

NARRATIVE: CASE EVENT DATE: 20190620
